FAERS Safety Report 23543385 (Version 3)
Quarter: 2024Q1

REPORT INFORMATION
  Report Type: Spontaneous
  Country: US (occurrence: US)
  Receive Date: 20240220
  Receipt Date: 20240301
  Transmission Date: 20240410
  Serious: No
  Sender: FDA-Public Use
  Company Number: US-ABBVIE-5645892

PATIENT
  Sex: Male

DRUGS (2)
  1. VRAYLAR [Suspect]
     Active Substance: CARIPRAZINE
     Indication: Major depression
     Dosage: FORM STRENGTH- 3 MILLIGRAM
     Route: 048
     Dates: start: 202402, end: 20240215
  2. VRAYLAR [Suspect]
     Active Substance: CARIPRAZINE
     Indication: Major depression
     Dosage: FORM STRENGTH WAS 1.5 MILLIGRAM?START DATE TEXT WAS 4 TO 6 WEEKS AGO
     Route: 048
     Dates: start: 202401, end: 202402

REACTIONS (3)
  - Akathisia [Unknown]
  - Tic [Unknown]
  - Therapeutic product effect decreased [Not Recovered/Not Resolved]

NARRATIVE: CASE EVENT DATE: 20240101
